FAERS Safety Report 13463474 (Version 4)
Quarter: 2017Q2

REPORT INFORMATION
  Report Type: Spontaneous
  Country: US (occurrence: US)
  Receive Date: 20170420
  Receipt Date: 20170607
  Transmission Date: 20170830
  Serious: Yes (Hospitalization)
  Sender: FDA-Public Use
  Company Number: US-PFIZER INC-2017169504

PATIENT
  Age: 61 Year
  Sex: Female
  Weight: 108.8 kg

DRUGS (2)
  1. IBRANCE [Suspect]
     Active Substance: PALBOCICLIB
     Dosage: 125 MG, CYCLIC (DAY1-21 Q 28 DAYS)
     Route: 048
     Dates: start: 20170412
  2. IBRANCE [Suspect]
     Active Substance: PALBOCICLIB
     Indication: BREAST CANCER METASTATIC
     Dosage: 125 MG, CYCLIC, (DAILY DAYS 1-21Q 28 DAYS)
     Route: 048
     Dates: start: 20170411

REACTIONS (15)
  - Decreased appetite [Unknown]
  - Nausea [Unknown]
  - Neoplasm progression [Unknown]
  - Fatigue [Unknown]
  - Pyrexia [Unknown]
  - Vomiting [Unknown]
  - Poor quality sleep [Unknown]
  - Dyspnoea [Unknown]
  - Feeling hot [Unknown]
  - Pain [Unknown]
  - Abdominal pain upper [Unknown]
  - Headache [Unknown]
  - Pleural effusion [Unknown]
  - Paraesthesia [Unknown]
  - Asthenia [Unknown]

NARRATIVE: CASE EVENT DATE: 20170415
